FAERS Safety Report 8970823 (Version 5)
Quarter: 2013Q3

REPORT INFORMATION
  Report Type: Spontaneous
  Country: US (occurrence: US)
  Receive Date: 20121218
  Receipt Date: 20130920
  Transmission Date: 20140515
  Serious: No
  Sender: FDA-Public Use
  Company Number: US-PFIZER INC-2012307935

PATIENT
  Age: 58 Year
  Sex: Female
  Weight: 59.86 kg

DRUGS (2)
  1. CYTOTEC [Suspect]
     Dosage: 200 MG, 2X/DAY
  2. LYRICA [Suspect]
     Indication: FIBROMYALGIA
     Dosage: 150 MG, 3X/DAY
     Dates: start: 2010

REACTIONS (2)
  - Nasopharyngitis [Unknown]
  - Memory impairment [Unknown]
